FAERS Safety Report 24333102 (Version 1)
Quarter: 2024Q3

REPORT INFORMATION
  Report Type: Spontaneous
  Country: US (occurrence: US)
  Receive Date: 20240918
  Receipt Date: 20240918
  Transmission Date: 20241016
  Serious: Yes (Hospitalization)
  Sender: PFIZER
  Company Number: US-PFIZER INC-PV202400121405

PATIENT
  Age: 95 Year
  Sex: Male

DRUGS (1)
  1. INLYTA [Suspect]
     Active Substance: AXITINIB
     Dosage: 1 MG

REACTIONS (3)
  - Diarrhoea [Recovered/Resolved]
  - Blood potassium decreased [Unknown]
  - Blood creatine increased [Unknown]
